FAERS Safety Report 10407443 (Version 1)
Quarter: 2014Q1

REPORT INFORMATION
  Report Type: Spontaneous
  Country: US (occurrence: None)
  Receive Date: 20140228
  Receipt Date: 20140228
  Transmission Date: 20141002
  Serious: No
  Sender: FDA-Public Use
  Company Number: 225849LEO

PATIENT
  Age: 4 Year
  Sex: Female

DRUGS (1)
  1. PICATO (INGENOL MEBUTATE) [Suspect]
     Indication: MOLLUSCUM CONTAGIOSUM

REACTIONS (9)
  - Application site erythema [None]
  - Application site erythema [None]
  - Application site irritation [None]
  - Off label use [None]
  - Off label use [None]
  - Incorrect drug administration duration [None]
  - Therapeutic response unexpected [None]
  - Incorrect dose administered [None]
  - Drug administered at inappropriate site [None]
